FAERS Safety Report 6786767-6 (Version None)
Quarter: 2010Q2

REPORT INFORMATION
  Report Type: 
  Country: None (occurrence: None)
  Receive Date: 20100623
  Receipt Date: 20100621
  Transmission Date: 20101027
  Serious: Yes (Life-Threatening, Hospitalization, Other)
  Sender: FDA-Public Use
  Company Number: IN-ROXANE LABORATORIES, INC.-2010-RO-00741RO

PATIENT
  Age: 26 Year
  Sex: Male
  Weight: 60 kg

DRUGS (11)
  1. LIDOCAINE [Suspect]
     Indication: LOCAL ANAESTHESIA
     Route: 061
  2. LIDOCAINE [Suspect]
  3. LIDOCAINE [Suspect]
     Dosage: 100 MG
     Route: 042
  4. MIDAZOLAM HCL [Suspect]
     Indication: SEDATION
     Route: 042
  5. ONDANSETRON [Suspect]
     Route: 042
  6. EPINEPHRINE [Suspect]
  7. EPINEPHRINE [Suspect]
  8. ATROPINE [Suspect]
     Indication: PREMEDICATION
     Route: 030
  9. PENTAZOCINE [Suspect]
     Indication: ANALGESIC THERAPY
     Route: 042
  10. PROMETHAZINE [Suspect]
     Indication: SEDATION
     Route: 042
  11. RANITIDINE [Suspect]
     Route: 042

REACTIONS (4)
  - CARDIAC ARREST [None]
  - DRUG ADMINISTRATION ERROR [None]
  - SINUS TACHYCARDIA [None]
  - VENTRICULAR EXTRASYSTOLES [None]
